FAERS Safety Report 6731247-7 (Version None)
Quarter: 2010Q2

REPORT INFORMATION
  Report Type: 
  Country: None (occurrence: None)
  Receive Date: 20100517
  Receipt Date: 20100517
  Transmission Date: 20101027
  Serious: Yes (Life-Threatening, Hospitalization)
  Sender: FDA-Public Use
  Company Number: None

PATIENT
  Age: 61 Year
  Sex: Male
  Weight: 113.4 kg

DRUGS (4)
  1. METFORMIN HCL [Suspect]
     Indication: DIABETES MELLITUS
     Dosage: 1000 MG BID PO
     Route: 048
     Dates: start: 20050224, end: 20100330
  2. METFORMIN HCL [Suspect]
     Indication: PAIN
     Dosage: 1000 MG BID PO
     Route: 048
     Dates: start: 20050224, end: 20100330
  3. METFORMIN HCL [Suspect]
     Indication: DIABETES MELLITUS
     Dosage: 1000 MG BID PO
     Route: 048
     Dates: start: 20080613, end: 20100330
  4. METFORMIN HCL [Suspect]
     Indication: PAIN
     Dosage: 1000 MG BID PO
     Route: 048
     Dates: start: 20080613, end: 20100330

REACTIONS (4)
  - DEHYDRATION [None]
  - DRUG INTERACTION [None]
  - LACTIC ACIDOSIS [None]
  - RENAL FAILURE ACUTE [None]
